FAERS Safety Report 7939029-5 (Version None)
Quarter: 2011Q4

REPORT INFORMATION
  Report Type: 
  Country: None (occurrence: None)
  Receive Date: 20111124
  Receipt Date: 20111121
  Transmission Date: 20120403
  Serious: Yes (Other)
  Sender: FDA-Public Use
  Company Number: US-PFIZER INC-2011251082

PATIENT
  Sex: Male
  Weight: 63 kg

DRUGS (6)
  1. DILANTIN [Suspect]
     Dosage: 150 MG AM AND 200 MG PM
     Route: 048
     Dates: start: 20110101
  2. DILANTIN [Suspect]
     Indication: EPILEPSY
     Dosage: UNK
     Route: 048
     Dates: start: 20110101, end: 20110101
  3. DILANTIN [Suspect]
     Indication: CONVULSION
     Dosage: 100 MG, 2X/DAY
     Route: 048
     Dates: start: 20100901, end: 20110101
  4. DILANTIN [Suspect]
     Dosage: UNK
     Route: 048
     Dates: start: 20110101, end: 20110101
  5. LAMICTAL [Concomitant]
     Indication: EPILEPSY
     Dosage: 150 MG TWICE DAILY AND 200 MG AT NIGHT
  6. DEPAKOTE [Concomitant]
     Indication: EPILEPSY
     Dosage: 250 MG, 2X/DAY

REACTIONS (2)
  - CONVULSION [None]
  - ANTICONVULSANT DRUG LEVEL DECREASED [None]
